FAERS Safety Report 19464654 (Version 2)
Quarter: 2021Q2

REPORT INFORMATION
  Report Type: Report from Study
  Country: CA (occurrence: CA)
  Receive Date: 20210626
  Receipt Date: 20210626
  Transmission Date: 20210717
  Serious: Yes (Other)
  Sender: FDA-Public Use
  Company Number: NVSC2021CA139165

PATIENT
  Sex: Male

DRUGS (9)
  1. CLOBETASOL [Suspect]
     Active Substance: CLOBETASOL
     Indication: CHRONIC SPONTANEOUS URTICARIA
     Dosage: UNK UNK, PRN,1 X 0.05%MCG (UG)
     Route: 061
     Dates: start: 20200805
  2. ATARAX [Concomitant]
     Active Substance: HYDROXYZINE HYDROCHLORIDE
     Indication: CHRONIC SPONTANEOUS URTICARIA
     Dosage: 2 DF, QD
     Route: 048
     Dates: start: 20210414
  3. MENTHOL. [Concomitant]
     Active Substance: MENTHOL
     Indication: PRODUCT USED FOR UNKNOWN INDICATION
     Dosage: UNK
     Route: 065
  4. REACTINE [Concomitant]
     Indication: CHRONIC SPONTANEOUS URTICARIA
     Dosage: 1 DF, BID
     Route: 048
     Dates: start: 20210422
  5. VIADERM?KC [Concomitant]
     Indication: CHRONIC SPONTANEOUS URTICARIA
     Dosage: UNK, TID, 1 (STRENGTH: 2.5 + 1 + 0.25 UNITS)
     Route: 061
     Dates: start: 20210603
  6. MONTELUKAST [Suspect]
     Active Substance: MONTELUKAST SODIUM
     Indication: CHRONIC SPONTANEOUS URTICARIA
     Dosage: 10 MG, QD
     Route: 048
     Dates: start: 20210603
  7. PREDNISONE. [Concomitant]
     Active Substance: PREDNISONE
     Indication: PRODUCT USED FOR UNKNOWN INDICATION
     Dosage: UNK,  1 OTHER
     Route: 048
     Dates: start: 20201110
  8. HYDROCORTISONE. [Suspect]
     Active Substance: HYDROCORTISONE
     Indication: CHRONIC SPONTANEOUS URTICARIA
     Dosage: UNK UNK, BID,1 X 1%MCG (UG),
     Route: 061
     Dates: start: 20201130, end: 20201214
  9. CEFUROXIME. [Suspect]
     Active Substance: CEFUROXIME
     Indication: PRODUCT USED FOR UNKNOWN INDICATION
     Dosage: UNK
     Route: 065

REACTIONS (2)
  - Off label use [Unknown]
  - Hypersensitivity [Unknown]
